FAERS Safety Report 7385380-X (Version None)
Quarter: 2011Q1

REPORT INFORMATION
  Report Type: 
  Country: None (occurrence: None)
  Receive Date: 20110330
  Receipt Date: 20101213
  Transmission Date: 20110831
  Serious: No
  Sender: FDA-Public Use
  Company Number: US-MYLANLABS-2010S1022928

PATIENT
  Age: 47 Year
  Sex: Male
  Weight: 82.56 kg

DRUGS (5)
  1. EMSAM [Suspect]
     Dates: start: 20101101, end: 20101101
  2. LAMICTAL [Concomitant]
  3. EMSAM [Suspect]
     Dates: start: 20101101
  4. DIAZEPAM [Concomitant]
  5. EMSAM [Suspect]
     Dosage: Q24HR
     Dates: start: 20101101, end: 20101101

REACTIONS (10)
  - NECK PAIN [None]
  - FOOD CRAVING [None]
  - BLOOD PRESSURE INCREASED [None]
  - FEELING ABNORMAL [None]
  - SUICIDAL IDEATION [None]
  - AGITATION [None]
  - PALPITATIONS [None]
  - MUSCULOSKELETAL PAIN [None]
  - DIZZINESS [None]
  - RHINORRHOEA [None]
